FAERS Safety Report 4275877-3 (Version None)
Quarter: 2004Q1

REPORT INFORMATION
  Report Type: 
  Country: None (occurrence: None)
  Receive Date: 20040121
  Receipt Date: 20030212
  Transmission Date: 20041129
  Serious: No
  Sender: FDA-Public Use
  Company Number: US-GLAXOSMITHKLINE-A0396664A

PATIENT
  Age: 27 Year
  Sex: Male

DRUGS (1)
  1. VALTREX [Suspect]
     Dosage: 2G TWICE PER DAY
     Route: 048

REACTIONS (3)
  - ARTHRALGIA [None]
  - BRADYCARDIA [None]
  - VENTRICULAR ARRHYTHMIA [None]
